FAERS Safety Report 20173760 (Version 1)
Quarter: 2021Q4

REPORT INFORMATION
  Report Type: Report from Study
  Country: US (occurrence: US)
  Receive Date: 20211213
  Receipt Date: 20211213
  Transmission Date: 20220303
  Serious: Yes (Hospitalization, Other)
  Sender: FDA-Public Use
  Company Number: US-ABBVIE-21K-163-4194059-00

PATIENT
  Sex: Female

DRUGS (3)
  1. HUMIRA [Suspect]
     Active Substance: ADALIMUMAB
     Indication: Crohn^s disease
     Dosage: CITRATE FREE
     Route: 058
  2. MODERNA COVID-19 VACCINE [Concomitant]
     Active Substance: ELASOMERAN
     Indication: COVID-19 immunisation
     Route: 030
     Dates: start: 20210313, end: 20210313
  3. MODERNA COVID-19 VACCINE [Concomitant]
     Active Substance: ELASOMERAN
     Route: 030
     Dates: start: 20210410, end: 20210410

REACTIONS (8)
  - Loss of consciousness [Unknown]
  - Renal cyst [Recovering/Resolving]
  - Renal injury [Recovering/Resolving]
  - Crohn^s disease [Recovering/Resolving]
  - Hypovitaminosis [Unknown]
  - Bone density abnormal [Unknown]
  - Ageusia [Unknown]
  - Vomiting [Unknown]
